FAERS Safety Report 6095882-4 (Version None)
Quarter: 2009Q1

REPORT INFORMATION
  Report Type: 
  Country: None (occurrence: None)
  Receive Date: 20090227
  Receipt Date: 20080707
  Transmission Date: 20090719
  Serious: No
  Sender: FDA-Public Use
  Company Number: A0736247A

PATIENT
  Age: 45 Year
  Sex: Female

DRUGS (8)
  1. LAMICTAL [Suspect]
     Indication: EPILEPSY
     Dosage: 700MG PER DAY
     Route: 048
     Dates: start: 20030101
  2. ACTONEL [Concomitant]
  3. ANTACID TAB [Concomitant]
  4. CERTAGEN [Concomitant]
  5. FIBER LAXATIVE [Concomitant]
  6. RISPERDAL [Concomitant]
  7. SERTRALINE [Concomitant]
  8. TRAZODONE HCL [Concomitant]

REACTIONS (1)
  - RASH [None]
